FAERS Safety Report 5665029-4 (Version None)
Quarter: 2008Q1

REPORT INFORMATION
  Report Type: 
  Country: None (occurrence: None)
  Receive Date: 20080314
  Receipt Date: 20080307
  Transmission Date: 20080703
  Serious: Yes (Life-Threatening, Hospitalization)
  Sender: FDA-Public Use
  Company Number: JP-ABBOTT-08P-087-0441254-00

PATIENT
  Age: 96 Year
  Sex: Female
  Weight: 36 kg

DRUGS (6)
  1. CLARITH TABLETS [Suspect]
     Indication: BRONCHITIS
     Route: 048
     Dates: start: 20080115, end: 20080119
  2. GLIMEPIRIDE [Interacting]
     Indication: DIABETES MELLITUS
     Route: 048
     Dates: start: 20070115, end: 20080119
  3. DONEPEZIL HCL [Concomitant]
     Indication: DEMENTIA ALZHEIMER'S TYPE
     Route: 048
  4. AMLODIPINE BESYLATE [Concomitant]
     Indication: HYPERTENSION
     Route: 048
  5. LANSOPRAZOLE [Concomitant]
     Indication: REFLUX OESOPHAGITIS
     Route: 048
  6. CLOPIDOGREL BISULFATE [Concomitant]
     Indication: DRUG USE FOR UNKNOWN INDICATION
     Route: 048

REACTIONS (3)
  - CEREBRAL ATROPHY [None]
  - DRUG INTERACTION [None]
  - HYPOGLYCAEMIC COMA [None]
